FAERS Safety Report 23150260 (Version 1)
Quarter: 2023Q4

REPORT INFORMATION
  Report Type: Spontaneous
  Country: CN (occurrence: CN)
  Receive Date: 20231106
  Receipt Date: 20231106
  Transmission Date: 20240110
  Serious: Yes (Other)
  Sender: FDA-Public Use
  Company Number: CN-PFIZER INC-PV202300179091

PATIENT
  Age: 41 Year
  Sex: Female
  Weight: 54 kg

DRUGS (2)
  1. METHOTREXATE SODIUM [Suspect]
     Active Substance: METHOTREXATE SODIUM
     Indication: Ectopic pregnancy
     Dosage: 78 MG, 1X/DAY
     Route: 030
     Dates: start: 20231008, end: 20231008
  2. MIFEPRISTONE [Suspect]
     Active Substance: MIFEPRISTONE
     Indication: Ectopic pregnancy
     Dosage: 100 MG, 1X/DAY
     Route: 048
     Dates: start: 20231008, end: 20231014

REACTIONS (2)
  - Hepatic enzyme abnormal [Recovering/Resolving]
  - Off label use [Unknown]

NARRATIVE: CASE EVENT DATE: 20231014
